FAERS Safety Report 9601716 (Version 1)
Quarter: 2013Q4

REPORT INFORMATION
  Report Type: Spontaneous
  Country: US (occurrence: None)
  Receive Date: 20131004
  Receipt Date: 20131004
  Transmission Date: 20140711
  Serious: No
  Sender: FDA-Public Use
  Company Number: None

PATIENT
  Age: 33 Year
  Sex: Male
  Weight: 79.38 kg

DRUGS (1)
  1. PROPECIA MERCK [Suspect]
     Indication: ALOPECIA
     Dosage: 1; ONCE DAILY
     Route: 048

REACTIONS (5)
  - Sexual dysfunction [None]
  - Loss of libido [None]
  - Anorgasmia [None]
  - Insomnia [None]
  - Unevaluable event [None]
